FAERS Safety Report 6429039-1 (Version None)
Quarter: 2009Q4

REPORT INFORMATION
  Report Type: 
  Country: None (occurrence: None)
  Receive Date: 20091105
  Receipt Date: 20091030
  Transmission Date: 20100525
  Serious: Yes (Hospitalization)
  Sender: FDA-Public Use
  Company Number: AU-B.I. PHARMACEUTICALS,INC./RIDGEFIELD-2009-AU-00596AU

PATIENT
  Sex: Male

DRUGS (3)
  1. VIRAMUNE [Suspect]
     Indication: HIV INFECTION
     Dosage: 400 MG
     Route: 048
     Dates: start: 20040101, end: 20091008
  2. ABACAVIR SULFATE AND LAMIVUDINE [Suspect]
     Route: 048
     Dates: start: 20070101, end: 20091008
  3. MEDICATION NOT OTHERWISE SPECIFIED [Concomitant]
     Indication: DEPRESSION

REACTIONS (1)
  - INTENTIONAL OVERDOSE [None]
